FAERS Safety Report 19238954 (Version 2)
Quarter: 2021Q2

REPORT INFORMATION
  Report Type: Report from Study
  Country: US (occurrence: US)
  Receive Date: 20210510
  Receipt Date: 20210517
  Transmission Date: 20210717
  Serious: No
  Sender: FDA-Public Use
  Company Number: NVSC2021US099777

PATIENT
  Sex: Female
  Weight: 94.35 kg

DRUGS (1)
  1. RECLAST [Suspect]
     Active Substance: ZOLEDRONIC ACID
     Indication: ANDROGEN THERAPY
     Dosage: 5 MG, ONCE/SINGLE
     Route: 042
     Dates: start: 20210423

REACTIONS (2)
  - Product use in unapproved indication [Unknown]
  - Pain in extremity [Not Recovered/Not Resolved]
